FAERS Safety Report 17572641 (Version 1)
Quarter: 2020Q1

REPORT INFORMATION
  Report Type: Spontaneous
  Country: US (occurrence: US)
  Receive Date: 20200323
  Receipt Date: 20200323
  Transmission Date: 20200409
  Serious: Yes (Other)
  Sender: FDA-Public Use
  Company Number: None

PATIENT
  Age: 20 Year
  Sex: Female

DRUGS (7)
  1. BUT/APAPCAF [Concomitant]
  2. ACTHAR [Suspect]
     Active Substance: CORTICOTROPIN
     Indication: MULTIPLE SCLEROSIS
     Route: 058
     Dates: start: 20200228
  3. RIBOFLAVIN [Concomitant]
     Active Substance: RIBOFLAVIN
  4. METHYLPRED [Concomitant]
     Active Substance: METHYLPREDNISOLONE
  5. MELOXICAM. [Concomitant]
     Active Substance: MELOXICAM
  6. MAG OXIDE [Concomitant]
     Active Substance: MAGNESIUM OXIDE
  7. ACYCLOVIR. [Concomitant]
     Active Substance: ACYCLOVIR

REACTIONS (2)
  - Neoplasm [None]
  - Therapy cessation [None]
